FAERS Safety Report 7108702-3 (Version None)
Quarter: 2010Q4

REPORT INFORMATION
  Report Type: 
  Country: None (occurrence: None)
  Receive Date: 20101117
  Receipt Date: 20101109
  Transmission Date: 20110411
  Serious: Yes (Other)
  Sender: FDA-Public Use
  Company Number: US-AMGEN-USASP2010000357

PATIENT

DRUGS (1)
  1. ENBREL [Suspect]
     Indication: RHEUMATOID ARTHRITIS
     Dosage: 25 MG, Q2WK
     Dates: start: 20021101

REACTIONS (8)
  - DYSGRAPHIA [None]
  - FATIGUE [None]
  - FIBROMYALGIA [None]
  - HEADACHE [None]
  - INSOMNIA [None]
  - MEMORY IMPAIRMENT [None]
  - RHEUMATOID ARTHRITIS [None]
  - SOMNOLENCE [None]
